FAERS Safety Report 5818639-5 (Version None)
Quarter: 2008Q3

REPORT INFORMATION
  Report Type: 
  Country: None (occurrence: None)
  Receive Date: 20080717
  Receipt Date: 20080717
  Transmission Date: 20090109
  Serious: Yes (Other)
  Sender: FDA-Public Use
  Company Number: None

PATIENT
  Age: 50 Year
  Sex: Male
  Weight: 72.5755 kg

DRUGS (1)
  1. LIPITOR [Suspect]
     Indication: BLOOD CHOLESTEROL
     Dosage: FROM 10 MG TO 80 MG
     Dates: start: 19800101, end: 20070101

REACTIONS (2)
  - PAIN IN EXTREMITY [None]
  - WALKING AID USER [None]
